FAERS Safety Report 10259032 (Version 1)
Quarter: 2014Q2

REPORT INFORMATION
  Report Type: Spontaneous
  Country: US (occurrence: US)
  Receive Date: 20140625
  Receipt Date: 20140625
  Transmission Date: 20141212
  Serious: No
  Sender: FDA-Public Use
  Company Number: US-ASTELLAS-2013US010369

PATIENT
  Age: 51 Year
  Sex: Female

DRUGS (1)
  1. VESICARE [Suspect]
     Indication: PRODUCT USED FOR UNKNOWN INDICATION
     Route: 048
     Dates: start: 20130926

REACTIONS (4)
  - Euphoric mood [Unknown]
  - Somnolence [Unknown]
  - Dizziness [Unknown]
  - Sluggishness [Unknown]
